FAERS Safety Report 11786886 (Version 1)
Quarter: 2015Q4

REPORT INFORMATION
  Report Type: Spontaneous
  Country: IT (occurrence: IT)
  Receive Date: 20151130
  Receipt Date: 20151130
  Transmission Date: 20160305
  Serious: Yes (Disabling, Other)
  Sender: FDA-Public Use
  Company Number: IT-AMGEN-ITASP2015126069

PATIENT
  Age: 80 Year
  Sex: Female

DRUGS (1)
  1. XGEVA [Suspect]
     Active Substance: DENOSUMAB
     Indication: METASTASES TO BONE
     Dosage: 120 MG, QMO
     Route: 065
     Dates: start: 20130619, end: 20150610

REACTIONS (4)
  - Purulent discharge [Unknown]
  - Tooth infection [Unknown]
  - Osteonecrosis of jaw [Unknown]
  - Soft tissue swelling [Unknown]

NARRATIVE: CASE EVENT DATE: 20151123
